FAERS Safety Report 4761829-3 (Version None)
Quarter: 2005Q3

REPORT INFORMATION
  Report Type: 
  Country: None (occurrence: None)
  Receive Date: 20050906
  Receipt Date: 20050826
  Transmission Date: 20060218
  Serious: Yes (Hospitalization)
  Sender: FDA-Public Use
  Company Number: FR-ROCHE-415783

PATIENT
  Age: 57 Year
  Sex: Male

DRUGS (12)
  1. VALIUM [Suspect]
     Indication: DRUG USE FOR UNKNOWN INDICATION
     Dosage: OVERDOSE.
     Route: 048
  2. VALIUM [Suspect]
     Route: 048
  3. CITALOPRAM HYDROBROMIDE [Suspect]
     Indication: DRUG USE FOR UNKNOWN INDICATION
     Dosage: OVERDOSE.
     Route: 048
  4. CITALOPRAM HYDROBROMIDE [Suspect]
     Route: 048
  5. ESPERAL [Suspect]
     Indication: DRUG USE FOR UNKNOWN INDICATION
     Dosage: OVERDOSE.
     Route: 048
  6. ESPERAL [Suspect]
     Route: 048
  7. CETORNAN [Suspect]
     Indication: DRUG USE FOR UNKNOWN INDICATION
     Dosage: OVERDOSE.
     Route: 048
  8. CETORNAN [Suspect]
     Route: 048
  9. LEGALON [Suspect]
     Indication: DRUG USE FOR UNKNOWN INDICATION
     Dosage: OVERDOSE.
     Route: 048
  10. LEGALON [Suspect]
     Route: 048
  11. ALDACTONE [Suspect]
     Indication: DRUG USE FOR UNKNOWN INDICATION
     Dosage: OVERDOSE.
     Route: 048
  12. ALDACTONE [Suspect]
     Route: 048

REACTIONS (5)
  - BLOOD LACTIC ACID INCREASED [None]
  - DEPRESSED LEVEL OF CONSCIOUSNESS [None]
  - MULTIPLE DRUG OVERDOSE [None]
  - OVERDOSE [None]
  - VOMITING [None]
